FAERS Safety Report 7422550-6 (Version None)
Quarter: 2011Q2

REPORT INFORMATION
  Report Type: 
  Country: None (occurrence: None)
  Receive Date: 20110408
  Receipt Date: 20110331
  Transmission Date: 20111010
  Serious: Yes (Hospitalization)
  Sender: FDA-Public Use
  Company Number: CAP11000023

PATIENT
  Age: 49 Year
  Sex: Female
  Weight: 63.1 kg

DRUGS (7)
  1. GLUCOSAMINE (GLUCOSAMINE) [Concomitant]
  2. ERGOCALCIFEROL [Concomitant]
  3. ACTONEL [Suspect]
     Indication: OSTEOPOROSIS
     Dosage: 150 MG ONCE MONTHLY, ORAL
     Route: 048
     Dates: start: 20100308, end: 20100308
  4. CALCIUM (CALCIUM) [Concomitant]
  5. FLAXSEED OIL (LINUM USITATISSIMUM SEED OIL) [Concomitant]
  6. MULTIVITAMIN /00831701/ (VITAMINS NOS) [Concomitant]
  7. VITAMIN B-12 [Concomitant]

REACTIONS (4)
  - ANGINA PECTORIS [None]
  - BACK PAIN [None]
  - ELECTROCARDIOGRAM ST SEGMENT DEPRESSION [None]
  - C-REACTIVE PROTEIN INCREASED [None]
